FAERS Safety Report 5720458-5 (Version None)
Quarter: 2008Q2

REPORT INFORMATION
  Report Type: 
  Country: None (occurrence: None)
  Receive Date: 20080428
  Receipt Date: 20080416
  Transmission Date: 20081010
  Serious: Yes (Hospitalization, Other)
  Sender: FDA-Public Use
  Company Number: AU-PFIZER INC-2008034850

PATIENT
  Age: 41 Year
  Sex: Female

DRUGS (3)
  1. CHAMPIX [Suspect]
     Indication: SMOKING CESSATION THERAPY
     Dates: start: 20080229, end: 20080321
  2. EFFEXOR [Concomitant]
  3. TRAMADOL HCL [Concomitant]

REACTIONS (2)
  - DEPRESSION [None]
  - OVERDOSE [None]
